FAERS Safety Report 25741837 (Version 1)
Quarter: 2025Q3

REPORT INFORMATION
  Report Type: Spontaneous
  Country: US (occurrence: None)
  Receive Date: 20250829
  Receipt Date: 20250829
  Transmission Date: 20251020
  Serious: Yes (Other)
  Sender: FDA-CTU
  Company Number: None

PATIENT
  Age: 56 Year
  Sex: Male
  Weight: 88.9 kg

DRUGS (1)
  1. ZEMAIRA [Suspect]
     Active Substance: .ALPHA.1-PROTEINASE INHIBITOR HUMAN
     Route: 042

REACTIONS (5)
  - Infusion related reaction [None]
  - Headache [None]
  - Chest pain [None]
  - Pain [None]
  - Blood pressure increased [None]

NARRATIVE: CASE EVENT DATE: 20250828
